FAERS Safety Report 6357838-3 (Version None)
Quarter: 2009Q3

REPORT INFORMATION
  Report Type: 
  Country: None (occurrence: None)
  Receive Date: 20090916
  Receipt Date: 20090902
  Transmission Date: 20100115
  Serious: Yes (Hospitalization, Other)
  Sender: FDA-Public Use
  Company Number: PHHY2009TR37521

PATIENT
  Age: 28 Year
  Sex: Female

DRUGS (3)
  1. CLOZAPINE [Suspect]
     Indication: SCHIZOPHRENIA
     Dosage: 25 MG/ DAY
  2. CLOZAPINE [Suspect]
     Dosage: 100 MG/ DAY
  3. CLOZAPINE [Suspect]
     Dosage: 400 MG/ DAY

REACTIONS (4)
  - AGGRESSION [None]
  - AGITATION [None]
  - CAESAREAN SECTION [None]
  - DRUG EXPOSURE DURING PREGNANCY [None]
